FAERS Safety Report 13504799 (Version 1)
Quarter: 2017Q2

REPORT INFORMATION
  Report Type: Spontaneous
  Country: US (occurrence: US)
  Receive Date: 20170502
  Receipt Date: 20170502
  Transmission Date: 20170830
  Serious: No
  Sender: FDA-Public Use
  Company Number: US-IMPAX LABORATORIES, INC-2017-IPXL-00330

PATIENT
  Sex: Male

DRUGS (2)
  1. RYTARY [Suspect]
     Active Substance: CARBIDOPA\LEVODOPA
     Dosage: 48.75/195 MG 1 CAPSULE MORNING  DAILY
     Route: 048
  2. RYTARY [Suspect]
     Active Substance: CARBIDOPA\LEVODOPA
     Indication: PRODUCT USED FOR UNKNOWN INDICATION
     Dosage: 48.75/195 MG 1 CAPSULE MORNING + 1 CAPSULE LATER IN DAY (AROUND 2 O^CLOCK IN AFTERNOON)
     Route: 048

REACTIONS (1)
  - Insomnia [Unknown]
